FAERS Safety Report 13738786 (Version 1)
Quarter: 2017Q3

REPORT INFORMATION
  Report Type: Spontaneous
  Country: US (occurrence: US)
  Receive Date: 20170710
  Receipt Date: 20170710
  Transmission Date: 20171127
  Serious: Yes (Other)
  Sender: FDA-Public Use
  Company Number: US-SAOL THERAPEUTICS-2017SAO00507

PATIENT
  Age: 47 Year
  Sex: Female
  Weight: 90.25 kg

DRUGS (13)
  1. HYDROCODONE AND ACETAMINOPHEN [Concomitant]
     Active Substance: ACETAMINOPHEN\HYDROCODONE
     Dosage: UNK UNK, AS NEEDED
     Route: 048
  2. COMPOUNDED BACLOFEN [Suspect]
     Active Substance: BACLOFEN
     Dosage: 13.994 ?G, \DAY
     Dates: start: 20170313
  3. DILAUDID [Suspect]
     Active Substance: HYDROMORPHONE HYDROCHLORIDE
     Dosage: UNK
     Route: 037
     Dates: end: 20170317
  4. DILAUDID [Suspect]
     Active Substance: HYDROMORPHONE HYDROCHLORIDE
     Dosage: 0.7008 UNK, UNK
     Dates: start: 20170317
  5. CLONIDINE. [Concomitant]
     Active Substance: CLONIDINE
     Dosage: 1 TABLETS, 1X/DAY
     Route: 048
     Dates: start: 20160721
  6. BUPIVACAINE. [Suspect]
     Active Substance: BUPIVACAINE
     Dosage: 2.452 2UNK, UNK
     Dates: start: 20170317
  7. COMPOUNDED BACLOFEN [Suspect]
     Active Substance: BACLOFEN
     Indication: PAIN
     Dosage: UNK
     Route: 037
     Dates: end: 20170317
  8. DILAUDID [Suspect]
     Active Substance: HYDROMORPHONE HYDROCHLORIDE
     Dosage: 0.3998 UNK, UNK
     Dates: start: 20170313
  9. COMPOUNDED BACLOFEN [Suspect]
     Active Substance: BACLOFEN
     Indication: POST LAMINECTOMY SYNDROME
     Dosage: 24.522 ?G, \DAY
     Dates: start: 20170317
  10. BUPIVACAINE. [Suspect]
     Active Substance: BUPIVACAINE
     Dosage: 1.3994 UNK, UNK
     Dates: start: 20170313
  11. ONDANSETRON [Concomitant]
     Active Substance: ONDANSETRON
     Dosage: 1 TABLETS, \DAY
  12. EFFEXOR [Concomitant]
     Active Substance: VENLAFAXINE HYDROCHLORIDE
     Dosage: UNK, 1X/DAY
     Route: 048
  13. BUPIVACAINE. [Suspect]
     Active Substance: BUPIVACAINE
     Dosage: UNK
     Route: 037
     Dates: end: 20170317

REACTIONS (22)
  - Device malfunction [Recovered/Resolved]
  - Weight increased [Recovering/Resolving]
  - Yawning [Recovering/Resolving]
  - Drug ineffective for unapproved indication [Recovering/Resolving]
  - Headache [Unknown]
  - Weight decreased [Unknown]
  - Anxiety [Unknown]
  - Libido decreased [Unknown]
  - Off label use [Unknown]
  - Fatigue [Recovering/Resolving]
  - Fall [Unknown]
  - Myalgia [Unknown]
  - Mobility decreased [Recovering/Resolving]
  - Muscle spasms [Unknown]
  - Nausea [Unknown]
  - Vomiting [Recovering/Resolving]
  - Dysgeusia [Recovering/Resolving]
  - Parosmia [Unknown]
  - Injury [Unknown]
  - Depressed mood [Unknown]
  - Increased tendency to bruise [Unknown]
  - Drug withdrawal syndrome [Recovered/Resolved]

NARRATIVE: CASE EVENT DATE: 2016
